FAERS Safety Report 13844611 (Version 1)
Quarter: 2017Q3

REPORT INFORMATION
  Report Type: Spontaneous
  Country: FR (occurrence: FR)
  Receive Date: 20170808
  Receipt Date: 20170808
  Transmission Date: 20171127
  Serious: Yes (Hospitalization, Other)
  Sender: FDA-Public Use
  Company Number: FR-BAYER-2017-151134

PATIENT
  Age: 28 Year
  Sex: Female

DRUGS (1)
  1. JAYDESS [Suspect]
     Active Substance: LEVONORGESTREL
     Indication: CONTRACEPTION
     Dosage: 14 MCG/24HR, CONT
     Route: 015
     Dates: start: 20150226, end: 20170314

REACTIONS (8)
  - Fallopian tube disorder [Recovered/Resolved with Sequelae]
  - Limb discomfort [Recovered/Resolved]
  - Internal haemorrhage [Recovered/Resolved with Sequelae]
  - Irritability [Recovered/Resolved]
  - Ectopic pregnancy [Recovered/Resolved with Sequelae]
  - Abdominal distension [Recovered/Resolved]
  - Back pain [Recovered/Resolved]
  - Salpingectomy [Recovered/Resolved with Sequelae]

NARRATIVE: CASE EVENT DATE: 20170314
